FAERS Safety Report 5103002-5 (Version None)
Quarter: 2006Q3

REPORT INFORMATION
  Report Type: 
  Country: None (occurrence: None)
  Receive Date: 20060908
  Receipt Date: 20060823
  Transmission Date: 20061208
  Serious: Yes (Hospitalization)
  Sender: FDA-Public Use
  Company Number: 229484

PATIENT
  Age: 65 Year
  Sex: Male

DRUGS (5)
  1. AVASTIN [Suspect]
     Indication: COLORECTAL CANCER METASTATIC
     Dosage: 1000 MG, Q3W, INTRAVENOUS
     Route: 042
  2. CAPECITABINE (CAPECITABINE) [Suspect]
     Indication: COLORECTAL CANCER METASTATIC
     Dosage: 4500 MG, D1 4/Q3W, ORAL
     Route: 048
     Dates: start: 20060814
  3. CITALOPRAM HYDROBROMIDE [Concomitant]
  4. CAPTOPRIL [Concomitant]
  5. CARVEDILOL [Concomitant]

REACTIONS (7)
  - BLOOD ALBUMIN ABNORMAL [None]
  - BLOOD BILIRUBIN ABNORMAL [None]
  - BLOOD CULTURE POSITIVE [None]
  - CREATININE RENAL CLEARANCE INCREASED [None]
  - ENTEROBACTER INFECTION [None]
  - PLATELET COUNT INCREASED [None]
  - PYREXIA [None]
